FAERS Safety Report 6015583-8 (Version None)
Quarter: 2008Q4

REPORT INFORMATION
  Report Type: 
  Country: None (occurrence: None)
  Receive Date: 20081219
  Receipt Date: 20081219
  Transmission Date: 20090506
  Serious: Yes (Death)
  Sender: FDA-Public Use
  Company Number: None

PATIENT
  Age: 48 Year
  Sex: Female
  Weight: 54.4316 kg

DRUGS (2)
  1. LEXAPRO [Suspect]
     Indication: ANXIETY
     Dosage: 10 MG TABLET 1 TABLET EVERY MOR OTHER
     Route: 050
     Dates: start: 20061001, end: 20070131
  2. LEXAPRO [Suspect]
     Indication: DEPRESSION
     Dosage: 10 MG TABLET 1 TABLET EVERY MOR OTHER
     Route: 050
     Dates: start: 20061001, end: 20070131

REACTIONS (1)
  - COMPLETED SUICIDE [None]
